FAERS Safety Report 4311010-7 (Version None)
Quarter: 2004Q1

REPORT INFORMATION
  Report Type: 
  Country: None (occurrence: None)
  Receive Date: 20040302
  Receipt Date: 20040211
  Transmission Date: 20041129
  Serious: Yes (Other)
  Sender: FDA-Public Use
  Company Number: MEDI-0001502

PATIENT
  Age: 66 Year
  Sex: Male
  Weight: 54.7 kg

DRUGS (20)
  1. ETHYOL [Suspect]
     Indication: RADIOTHERAPY
     Dosage: 500 MG, 5 IN 1 WK, SUBCUTANEOUS
     Route: 058
     Dates: start: 20031218, end: 20031226
  2. ETHYOL [Suspect]
     Indication: RADIOTHERAPY
     Dosage: 500 MG, 5 IN 1 WK, SUBCUTANEOUS
     Route: 058
     Dates: start: 20040209
  3. TYLENOL W/ CODEINE [Concomitant]
  4. XYLOCAINE [Concomitant]
  5. PAXIL [Concomitant]
  6. CIPRO(CIPROFLOXACIN HYI3ROCHLORIDE) [Concomitant]
  7. OXYCODONE(OXYCODONE) [Concomitant]
  8. FLUCONAZOLE [Concomitant]
  9. COLACE(DOCUSATE SODIUM) [Concomitant]
  10. MAGNESIUM CITRATE(MAGNESIUM CITRATE) [Concomitant]
  11. LAXATIVE [Concomitant]
  12. CELEXA(CITALOPRAM HYDROBRQMIDE) [Concomitant]
  13. DURAGESIC [Concomitant]
  14. RADIATION THERAPY [Concomitant]
  15. DECADRON [Concomitant]
  16. BENADRYL [Concomitant]
  17. MAALOX (MAGNESIUM HYDROXIDE, ALUMINIUM HYDROXIDE GEL) [Concomitant]
  18. LIDOCAINE [Concomitant]
  19. TYLENOL [Concomitant]
  20. ZOFRAN [Concomitant]

REACTIONS (3)
  - APTYALISM [None]
  - MUCOSAL INFLAMMATION [None]
  - RADIATION SKIN INJURY [None]
